FAERS Safety Report 4598299-4 (Version None)
Quarter: 2005Q1

REPORT INFORMATION
  Report Type: 
  Country: None (occurrence: None)
  Receive Date: 20050302
  Receipt Date: 20050302
  Transmission Date: 20050727
  Serious: Yes (Other)
  Sender: FDA-Public Use
  Company Number: None

PATIENT
  Age: 44 Year
  Sex: Male
  Weight: 76.2043 kg

DRUGS (1)
  1. HYDROCODONE/APAP 7.5 [Suspect]
     Indication: PAIN
     Dosage: 4 - 5 1 DAY

REACTIONS (2)
  - NAUSEA [None]
  - VOMITING [None]
